FAERS Safety Report 4664196-9 (Version None)
Quarter: 2005Q2

REPORT INFORMATION
  Report Type: 
  Country: None (occurrence: None)
  Receive Date: 20050516
  Receipt Date: 20050516
  Transmission Date: 20051028
  Serious: Yes (Hospitalization)
  Sender: FDA-Public Use
  Company Number: None

PATIENT
  Age: 86 Year
  Sex: Male
  Weight: 92 kg

DRUGS (5)
  1. METOPROLOL [Suspect]
     Indication: CARDIAC FAILURE CONGESTIVE
     Dosage: 12.5 MG PO  BID
     Route: 048
     Dates: start: 20050103
  2. METOPROLOL [Suspect]
     Indication: CORONARY ARTERY DISEASE
     Dosage: 12.5 MG PO  BID
     Route: 048
     Dates: start: 20050103
  3. METOPROLOL [Suspect]
     Indication: HYPERTENSION
     Dosage: 12.5 MG PO  BID
     Route: 048
     Dates: start: 20050103
  4. ATENOLOL [Suspect]
     Indication: CORONARY ARTERY DISEASE
     Dosage: 25 MG.PO ONCE DAILY
     Route: 048
     Dates: end: 20050106
  5. ATENOLOL [Suspect]
     Indication: HYPERTENSION
     Dosage: 25 MG.PO ONCE DAILY
     Route: 048
     Dates: end: 20050106

REACTIONS (4)
  - BRADYCARDIA [None]
  - DIZZINESS [None]
  - HYPOGLYCAEMIA [None]
  - OVERDOSE [None]
